FAERS Safety Report 6029096-0 (Version None)
Quarter: 2008Q4

REPORT INFORMATION
  Report Type: 
  Country: None (occurrence: None)
  Receive Date: 20081230
  Receipt Date: 20081211
  Transmission Date: 20090506
  Serious: Yes (Hospitalization)
  Sender: FDA-Public Use
  Company Number: 2008S1022865

PATIENT
  Age: 72 Year
  Sex: Male

DRUGS (5)
  1. NEBIVOLOL HCL [Suspect]
     Indication: CARDIAC FAILURE
     Dosage: 1.25 MG;DAILY;ORAL
     Route: 048
     Dates: start: 20081108
  2. TORSEMIDE [Concomitant]
  3. NOVODIGAL [Concomitant]
  4. LEVOTHYROXINE SODIUM [Concomitant]
  5. MARCUMAR [Concomitant]

REACTIONS (6)
  - CARDIAC FAILURE [None]
  - CONGESTIVE CARDIOMYOPATHY [None]
  - FLUID RETENTION [None]
  - GAMMA-GLUTAMYLTRANSFERASE INCREASED [None]
  - GENERALISED OEDEMA [None]
  - PULMONARY CONGESTION [None]
